FAERS Safety Report 6929186-1 (Version None)
Quarter: 2010Q3

REPORT INFORMATION
  Report Type: 
  Country: None (occurrence: None)
  Receive Date: 20100812
  Receipt Date: 20100728
  Transmission Date: 20110219
  Serious: Yes (Hospitalization, Other)
  Sender: FDA-Public Use
  Company Number: CV20100398

PATIENT
  Age: 23 Year
  Sex: Female

DRUGS (1)
  1. PROPOFOL [Suspect]
     Indication: PRODUCT USED FOR UNKNOWN INDICATION
     Dosage: 480 MG (CUMULATIVE DOSE) INTRAVENOUS (NOT OTHERWISE SPECIFED)
     Route: 042
     Dates: start: 20100608

REACTIONS (1)
  - HEPATITIS ACUTE [None]
